FAERS Safety Report 5956043-X (Version None)
Quarter: 2008Q4

REPORT INFORMATION
  Report Type: 
  Country: None (occurrence: None)
  Receive Date: 20081112
  Receipt Date: 20081029
  Transmission Date: 20090506
  Serious: Yes (Death, Other)
  Sender: FDA-Public Use
  Company Number: 2007US002125

PATIENT
  Age: 58 Year
  Sex: Female

DRUGS (1)
  1. PROGRAF [Suspect]
     Indication: LIVER TRANSPLANT
     Dosage: 7 MG, BID, ORAL, 4 MG, BID, ORAL
     Route: 048
     Dates: start: 20070801

REACTIONS (5)
  - CARDIAC FAILURE [None]
  - DRUG LEVEL INCREASED [None]
  - HEADACHE [None]
  - RENAL FAILURE [None]
  - TREMOR [None]
